FAERS Safety Report 5864044-5 (Version None)
Quarter: 2008Q3

REPORT INFORMATION
  Report Type: 
  Country: None (occurrence: None)
  Receive Date: 20080829
  Receipt Date: 20080527
  Transmission Date: 20090109
  Serious: Yes (Hospitalization)
  Sender: FDA-Public Use
  Company Number: PHBS2008IT05510

PATIENT
  Age: 69 Year
  Sex: Male

DRUGS (1)
  1. IMATINIB MESYLATE [Suspect]
     Indication: CHRONIC MYELOID LEUKAEMIA
     Dosage: 400MG/DAY
     Dates: start: 20041001

REACTIONS (6)
  - COLON CANCER [None]
  - COLONIC STENOSIS [None]
  - CONSTIPATION [None]
  - DIARRHOEA [None]
  - METASTASIS [None]
  - SIGMOIDECTOMY [None]
